FAERS Safety Report 11428960 (Version 1)
Quarter: 2015Q3

REPORT INFORMATION
  Report Type: Spontaneous
  Country: US (occurrence: None)
  Receive Date: 20150827
  Receipt Date: 20150827
  Transmission Date: 20151125
  Serious: Yes (Disabling)
  Sender: FDA-Public Use
  Company Number: None

PATIENT
  Age: 69 Year
  Sex: Female
  Weight: 97.52 kg

DRUGS (3)
  1. MULTI VIT CHILDS [Concomitant]
  2. TYLENOL [Concomitant]
     Active Substance: ACETAMINOPHEN
  3. AMLODIPINE [Suspect]
     Active Substance: AMLODIPINE BESYLATE
     Dosage: FOUR YEARS
     Route: 048

REACTIONS (9)
  - Pain in extremity [None]
  - Nocturia [None]
  - Muscular weakness [None]
  - Lethargy [None]
  - Gait disturbance [None]
  - Insomnia [None]
  - Neuropathy peripheral [None]
  - Pollakiuria [None]
  - Condition aggravated [None]
